FAERS Safety Report 7003973-6 (Version None)
Quarter: 2010Q3

REPORT INFORMATION
  Report Type: 
  Country: None (occurrence: None)
  Receive Date: 20100920
  Receipt Date: 20091211
  Transmission Date: 20110219
  Serious: No
  Sender: FDA-Public Use
  Company Number: US-WYE-H12633209

PATIENT
  Sex: Male

DRUGS (2)
  1. PRISTIQ [Suspect]
     Indication: DEPRESSION
     Route: 048
     Dates: start: 20080101, end: 20090601
  2. PRISTIQ [Suspect]
     Route: 048
     Dates: start: 20090601, end: 20091207

REACTIONS (1)
  - HEART RATE INCREASED [None]
